FAERS Safety Report 7683507-3 (Version None)
Quarter: 2011Q3

REPORT INFORMATION
  Report Type: 
  Country: None (occurrence: None)
  Receive Date: 20110815
  Receipt Date: 20110804
  Transmission Date: 20111222
  Serious: Yes (Other)
  Sender: FDA-Public Use
  Company Number: US-ASTRAZENECA-2011SE47042

PATIENT
  Age: 46 Year
  Sex: Male

DRUGS (7)
  1. METFORMIN HCL [Concomitant]
  2. SEROQUEL [Suspect]
     Indication: BIPOLAR DISORDER
     Route: 048
  3. ROXYCODONE [Concomitant]
  4. MEDICATION [Concomitant]
     Indication: NAUSEA
  5. GLYBURIDE [Concomitant]
  6. MORPHINE [Concomitant]
  7. NEXIUM [Concomitant]

REACTIONS (4)
  - DIABETES MELLITUS [None]
  - SURGERY [None]
  - INTERVERTEBRAL DISC PROTRUSION [None]
  - ACCIDENT AT WORK [None]
